FAERS Safety Report 4710742-6 (Version None)
Quarter: 2005Q3

REPORT INFORMATION
  Report Type: 
  Country: None (occurrence: None)
  Receive Date: 20050707
  Receipt Date: 20050621
  Transmission Date: 20060218
  Serious: Yes (Hospitalization)
  Sender: FDA-Public Use
  Company Number: S05-FRA-02274-01

PATIENT
  Age: 79 Year
  Sex: Male

DRUGS (2)
  1. EBIXA (MEMANTINE) [Suspect]
     Indication: DEMENTIA ALZHEIMER'S TYPE
     Dosage: 20 MG QD PO
     Route: 048
     Dates: start: 20041130, end: 20050531
  2. RABEPRAZOLE SODIUM [Suspect]
     Dates: start: 20040201, end: 20050531

REACTIONS (7)
  - AMNESIA [None]
  - CONDITION AGGRAVATED [None]
  - CONFUSIONAL STATE [None]
  - HALLUCINATION [None]
  - PERSECUTORY DELUSION [None]
  - PHYSICAL ASSAULT [None]
  - PSYCHOTIC DISORDER [None]
